FAERS Safety Report 8982411 (Version 1)
Quarter: 2012Q4

REPORT INFORMATION
  Report Type: 
  Country: US (occurrence: US)
  Receive Date: 20121222
  Receipt Date: 20121222
  Transmission Date: 20130627
  Serious: Yes (Hospitalization, Other)
  Sender: FDA-Public Use
  Company Number: US-B.I. PHARMACEUTICALS,INC./RIDGEFIELD-2012-BI-03682BP

PATIENT
  Age: 75 Year
  Sex: Male

DRUGS (9)
  1. PRADAXA [Suspect]
     Indication: ATRIAL FIBRILLATION
     Dates: end: 20121216
  2. METOPROLOL (LONG-ACTING) [Concomitant]
     Dosage: 100 mg
     Route: 048
  3. MULTIVITAMIN [Concomitant]
  4. PRAVACHOL [Concomitant]
     Dosage: 40 mg
     Route: 048
  5. ALLOPURINOL [Concomitant]
     Dosage: 100 mg
     Route: 048
  6. TYLENOL [Concomitant]
  7. CARDURA [Concomitant]
     Dosage: 4 mg
     Route: 048
  8. LASIX [Concomitant]
     Dosage: 40 mg
     Route: 048
  9. HYDROCHLOROTHIAZIDE [Concomitant]
     Dosage: 25 mg
     Route: 048

REACTIONS (5)
  - Haematuria [Unknown]
  - Gastrointestinal haemorrhage [Unknown]
  - Renal failure acute [Not Recovered/Not Resolved]
  - Blood fibrinogen decreased [Not Recovered/Not Resolved]
  - Chromaturia [Unknown]
